FAERS Safety Report 10248843 (Version 1)
Quarter: 2014Q2

REPORT INFORMATION
  Report Type: Report from Study
  Country: US (occurrence: US)
  Receive Date: 20140620
  Receipt Date: 20140620
  Transmission Date: 20141212
  Serious: Yes (Other)
  Sender: FDA-Public Use
  Company Number: US-ROCHE-1416765

PATIENT
  Sex: Male
  Weight: 36.4 kg

DRUGS (3)
  1. NUTROPIN AQ [Suspect]
     Indication: GROWTH HORMONE DEFICIENCY
     Route: 058
     Dates: start: 201402
  2. NUTROPIN AQ [Suspect]
     Route: 058
  3. NUTROPIN AQ [Suspect]
     Route: 058
     Dates: end: 201402

REACTIONS (6)
  - Pain in extremity [Unknown]
  - Arthralgia [Unknown]
  - Splint application [Unknown]
  - Arthralgia [Unknown]
  - Headache [Unknown]
  - Lymphadenopathy [Unknown]
